FAERS Safety Report 4759055-7 (Version None)
Quarter: 2005Q3

REPORT INFORMATION
  Report Type: 
  Country: None (occurrence: None)
  Receive Date: 20050826
  Receipt Date: 20050812
  Transmission Date: 20060218
  Serious: Yes (Life-Threatening)
  Sender: FDA-Public Use
  Company Number: 200507084

PATIENT
  Age: 59 Year
  Sex: Female

DRUGS (15)
  1. ALPHAGAN P [Suspect]
     Indication: GLAUCOMA SURGERY
  2. PILOCARPINE [Suspect]
     Indication: GLAUCOMA SURGERY
     Dosage: 1 DROP PRN EYE
  3. CALCIUM LACTULOSE [Concomitant]
  4. KLOR-CON [Concomitant]
  5. GLYBURIDE [Concomitant]
  6. ALDACTONE [Concomitant]
  7. SEROQUEL [Concomitant]
  8. PRILOSEC [Concomitant]
  9. HYDROXYZINE [Concomitant]
  10. LASIX [Concomitant]
  11. FOLIC ACID [Concomitant]
  12. VISINE EYE DROPS [Concomitant]
  13. PRED FORTE [Concomitant]
  14. PREDNISONE TAB [Concomitant]
  15. KEFLEX [Concomitant]

REACTIONS (5)
  - HYPOTENSION [None]
  - NAUSEA [None]
  - PROCEDURAL COMPLICATION [None]
  - PULSE ABSENT [None]
  - PULSE PRESSURE DECREASED [None]
